FAERS Safety Report 14031807 (Version 1)
Quarter: 2017Q4

REPORT INFORMATION
  Report Type: Spontaneous
  Country: US (occurrence: US)
  Receive Date: 20171002
  Receipt Date: 20171002
  Transmission Date: 20180321
  Serious: No
  Sender: FDA-Public Use
  Company Number: US-009507513-1709USA011995

PATIENT
  Sex: Female

DRUGS (1)
  1. NEXPLANON [Suspect]
     Active Substance: ETONOGESTREL
     Dosage: ROUTE: INSIDE THE LEFT ARM
     Route: 059
     Dates: start: 20160111

REACTIONS (1)
  - Neuralgia [Unknown]

NARRATIVE: CASE EVENT DATE: 20170908
